FAERS Safety Report 25253663 (Version 2)
Quarter: 2025Q2

REPORT INFORMATION
  Report Type: Spontaneous
  Country: US (occurrence: US)
  Receive Date: 20250430
  Receipt Date: 20250513
  Transmission Date: 20250717
  Serious: Yes (Life-Threatening, Hospitalization, Other)
  Sender: Norvium Bioscience
  Company Number: US-Norvium Bioscience LLC-080099

PATIENT
  Age: 45 Year
  Sex: Male

DRUGS (1)
  1. BACLOFEN [Suspect]
     Active Substance: BACLOFEN
     Indication: Pain
     Route: 037

REACTIONS (7)
  - Toxicity to various agents [Unknown]
  - Respiratory failure [Recovering/Resolving]
  - Cardiac arrest [Recovered/Resolved]
  - Hypertension [Unknown]
  - Electrocardiogram QT prolonged [Recovered/Resolved]
  - Hyperhidrosis [Unknown]
  - Salivary hypersecretion [Unknown]
